FAERS Safety Report 9232172 (Version 1)
Quarter: 2013Q2

REPORT INFORMATION
  Report Type: Spontaneous
  Country: GB (occurrence: GB)
  Receive Date: 20130415
  Receipt Date: 20130415
  Transmission Date: 20140414
  Serious: Yes (Death)
  Sender: FDA-Public Use
  Company Number: GB-009507513-0201GBR00178

PATIENT
  Sex: Female

DRUGS (2)
  1. SINGULAIR [Suspect]
     Indication: ASTHMA
     Route: 065
  2. SEREVENT DISKUS [Suspect]
     Indication: ASTHMA
     Route: 055

REACTIONS (4)
  - Sudden death [Fatal]
  - Hyponatraemia [Not Recovered/Not Resolved]
  - Metabolic acidosis [Fatal]
  - Inappropriate antidiuretic hormone secretion [Fatal]
